FAERS Safety Report 21259855 (Version 2)
Quarter: 2022Q4

REPORT INFORMATION
  Report Type: Spontaneous
  Country: US (occurrence: None)
  Receive Date: 20220826
  Receipt Date: 20221006
  Transmission Date: 20230112
  Serious: Yes (Death)
  Sender: FDA-Public Use
  Company Number: 2022A294651

PATIENT
  Sex: Female

DRUGS (2)
  1. CALQUENCE [Suspect]
     Active Substance: ACALABRUTINIB
     Indication: Non-Hodgkin^s lymphoma
     Route: 048
     Dates: start: 2019, end: 2022
  2. CALQUENCE [Suspect]
     Active Substance: ACALABRUTINIB
     Indication: Marginal zone lymphoma
     Route: 048
     Dates: start: 2019, end: 2022

REACTIONS (1)
  - Sudden cardiac death [Fatal]
